FAERS Safety Report 23481979 (Version 1)
Quarter: 2024Q1

REPORT INFORMATION
  Report Type: Spontaneous
  Country: US (occurrence: None)
  Receive Date: 20240203
  Receipt Date: 20240203
  Transmission Date: 20240409
  Serious: Yes (Hospitalization)
  Sender: FDA-Public Use
  Company Number: None

PATIENT
  Age: 38 Year
  Sex: Female
  Weight: 54.45 kg

DRUGS (2)
  1. DYSPORT [Suspect]
     Active Substance: ABOBOTULINUMTOXINA
     Indication: Skin wrinkling
     Dosage: OTHER QUANTITY : 189 INJECTION(S);?OTHER FREQUENCY : EVERY 3-4 MONTHS;?
     Route: 030
     Dates: start: 20230809, end: 20231115
  2. Levoxly 100mcg daily [Concomitant]

REACTIONS (20)
  - Hypoacusis [None]
  - Dysarthria [None]
  - Dysphagia [None]
  - Dyspnoea [None]
  - Heart rate increased [None]
  - Dysphonia [None]
  - Dizziness [None]
  - Nausea [None]
  - Paralysis [None]
  - Tremor [None]
  - Asthenia [None]
  - Seizure [None]
  - Muscle twitching [None]
  - Iatrogenic injury [None]
  - Botulism [None]
  - Brain fog [None]
  - Palpitations [None]
  - Disturbance in attention [None]
  - Lymphadenopathy [None]
  - Toxicity to various agents [None]

NARRATIVE: CASE EVENT DATE: 20231203
